FAERS Safety Report 20488016 (Version 9)
Quarter: 2022Q2

REPORT INFORMATION
  Report Type: Spontaneous
  Country: IT (occurrence: IT)
  Receive Date: 20220218
  Receipt Date: 20220411
  Transmission Date: 20220721
  Serious: Yes (Disabling, Other)
  Sender: FDA-Public Use
  Company Number: None

PATIENT
  Age: 65 Year
  Sex: Male

DRUGS (2)
  1. VENCLEXTA [Suspect]
     Active Substance: VENETOCLAX
     Indication: Chronic leukaemia
     Dosage: FILM COATED TABLETS
     Route: 048
     Dates: start: 202104, end: 202111
  2. RITUXIMAB [Suspect]
     Active Substance: RITUXIMAB
     Indication: Chronic leukaemia
     Route: 065
     Dates: start: 202104, end: 20210913

REACTIONS (7)
  - Hemianopia [Unknown]
  - Progressive multifocal leukoencephalopathy [Unknown]
  - Blindness [Unknown]
  - Nervous system disorder [Unknown]
  - Gait disturbance [Unknown]
  - Progressive multifocal leukoencephalopathy [Unknown]
  - Asthenia [Unknown]

NARRATIVE: CASE EVENT DATE: 20210901
